FAERS Safety Report 12981837 (Version 1)
Quarter: 2016Q4

REPORT INFORMATION
  Report Type: Spontaneous
  Country: US (occurrence: US)
  Receive Date: 20161128
  Receipt Date: 20161128
  Transmission Date: 20170207
  Serious: No
  Sender: FDA-Public Use
  Company Number: None

PATIENT
  Age: 56 Year
  Sex: Female

DRUGS (1)
  1. GAMUNEX [Suspect]
     Active Substance: HUMAN IMMUNOGLOBULIN G
     Indication: IMMUNODEFICIENCY COMMON VARIABLE
     Dosage: INFUSE 8GM (40ML) EVERY WEEK SUBCUTANEOUSLY
     Route: 058
     Dates: start: 20141202

REACTIONS (2)
  - Condition aggravated [None]
  - Sinusitis [None]

NARRATIVE: CASE EVENT DATE: 20161113
